FAERS Safety Report 7436009-3 (Version None)
Quarter: 2011Q2

REPORT INFORMATION
  Report Type: 
  Country: None (occurrence: None)
  Receive Date: 20110418
  Receipt Date: 20110331
  Transmission Date: 20111010
  Serious: Yes (Other)
  Sender: FDA-Public Use
  Company Number: JPI-P-002246

PATIENT
  Age: 64 Year
  Sex: Female
  Weight: 72.5755 kg

DRUGS (19)
  1. PANTOPRAZOLE [Concomitant]
  2. VENLAFAXINE HCL [Concomitant]
  3. DIAZEPAM [Concomitant]
  4. LEVOTHYROXINE SODIUM [Concomitant]
  5. CLOPIDOGREL BISULFATE [Concomitant]
  6. ASPIRIN [Concomitant]
  7. TOPIRAMATE [Concomitant]
  8. XYREM [Suspect]
     Dosage: 5 GM (2.5 GM,2 IN 1 D), ORAL; (2 IN 1 D), ORAL; 9 GM (4.5GM,2 IN 1 D),ORAL;2.25 GM (2.25 GM1 IN 1 D
     Route: 048
     Dates: start: 20110101, end: 20110101
  9. XYREM [Suspect]
     Dosage: 5 GM (2.5 GM,2 IN 1 D), ORAL; (2 IN 1 D), ORAL; 9 GM (4.5GM,2 IN 1 D),ORAL;2.25 GM (2.25 GM1 IN 1 D
     Route: 048
     Dates: start: 20110117, end: 20110101
  10. XYREM [Suspect]
     Dosage: 5 GM (2.5 GM,2 IN 1 D), ORAL; (2 IN 1 D), ORAL; 9 GM (4.5GM,2 IN 1 D),ORAL;2.25 GM (2.25 GM1 IN 1 D
     Route: 048
     Dates: start: 20070801, end: 20090101
  11. XYREM [Suspect]
     Dosage: 5 GM (2.5 GM,2 IN 1 D), ORAL; (2 IN 1 D), ORAL; 9 GM (4.5GM,2 IN 1 D),ORAL;2.25 GM (2.25 GM1 IN 1 D
     Route: 048
     Dates: start: 20110101, end: 20110401
  12. ISOSORBIDE DINITRATE [Concomitant]
  13. ROSUVASTATIN CALCIUM [Concomitant]
  14. TEMAZ [Concomitant]
  15. METHYLIN [Concomitant]
  16. FAMCICLOVIR [Concomitant]
  17. DULOXETINE HYDROCHLORIDE [Suspect]
     Indication: PRODUCT USED FOR UNKNOWN INDICATION
  18. CLONAZEPAM [Concomitant]
  19. PROPRANOLOL [Concomitant]

REACTIONS (9)
  - AMNESIA [None]
  - FATIGUE [None]
  - OEDEMA PERIPHERAL [None]
  - SWELLING FACE [None]
  - PAIN IN EXTREMITY [None]
  - RASH MACULO-PAPULAR [None]
  - WEIGHT INCREASED [None]
  - CONTUSION [None]
  - WOUND HAEMORRHAGE [None]
